FAERS Safety Report 19021104 (Version 2)
Quarter: 2021Q1

REPORT INFORMATION
  Report Type: Spontaneous
  Country: JP (occurrence: JP)
  Receive Date: 20210317
  Receipt Date: 20210322
  Transmission Date: 20210420
  Serious: Yes (Hospitalization, Other)
  Sender: FDA-Public Use
  Company Number: JP-BRISTOL-MYERS SQUIBB COMPANY-BMS-2021-026132

PATIENT
  Age: 29 Year
  Sex: Female

DRUGS (2)
  1. OPDIVO [Suspect]
     Active Substance: NIVOLUMAB
     Indication: MALIGNANT MELANOMA
     Dosage: 80 MILLIGRAM, Q3WK
     Route: 041
     Dates: start: 20200105
  2. YERVOY [Suspect]
     Active Substance: IPILIMUMAB
     Indication: MALIGNANT MELANOMA
     Dosage: 3 MILLIGRAM/KILOGRAM, Q3WK
     Route: 041
     Dates: start: 20210105

REACTIONS (10)
  - C-reactive protein increased [Unknown]
  - Dizziness [Unknown]
  - Ventricular fibrillation [Not Recovered/Not Resolved]
  - Headache [Not Recovered/Not Resolved]
  - Lymphadenopathy [Unknown]
  - Ventricular extrasystoles [Not Recovered/Not Resolved]
  - Splenomegaly [Unknown]
  - Pyrexia [Unknown]
  - Atrioventricular block second degree [Not Recovered/Not Resolved]
  - Vomiting [Unknown]
